FAERS Safety Report 21625095 (Version 4)
Quarter: 2022Q4

REPORT INFORMATION
  Report Type: Other
  Country: PE (occurrence: PE)
  Receive Date: 20221122
  Receipt Date: 20221229
  Transmission Date: 20230113
  Serious: Yes (Hospitalization, Other)
  Sender: FDA-Public Use
  Company Number: PE-002147023-PHHY2017PE154811

PATIENT
  Age: 69 Year
  Sex: Female
  Weight: 103 kg

DRUGS (12)
  1. XOLAIR [Suspect]
     Active Substance: OMALIZUMAB
     Indication: Asthma
     Route: 058
     Dates: start: 20170406
  2. XOLAIR [Suspect]
     Active Substance: OMALIZUMAB
     Route: 058
     Dates: start: 201707
  3. XOLAIR [Suspect]
     Active Substance: OMALIZUMAB
     Route: 058
     Dates: start: 201905
  4. XOLAIR [Suspect]
     Active Substance: OMALIZUMAB
     Dosage: (3 AMPOULS )
     Route: 065
  5. XOLAIR [Suspect]
     Active Substance: OMALIZUMAB
     Dosage: UNK
     Route: 058
     Dates: start: 20210104
  6. XOLAIR [Suspect]
     Active Substance: OMALIZUMAB
     Route: 058
     Dates: start: 20210611
  7. XOLAIR [Suspect]
     Active Substance: OMALIZUMAB
     Dosage: 4 DOSAGE FORM
     Route: 058
     Dates: start: 201704
  8. XOLAIR [Suspect]
     Active Substance: OMALIZUMAB
     Route: 058
     Dates: start: 2017
  9. TRAMADOL [Concomitant]
     Active Substance: TRAMADOL
     Indication: Product used for unknown indication
     Dosage: UNK
  10. ACETAMINOPHEN [Concomitant]
     Active Substance: ACETAMINOPHEN
     Indication: Product used for unknown indication
     Dosage: UNK
  11. SERETIDE [Concomitant]
     Active Substance: FLUTICASONE PROPIONATE\SALMETEROL XINAFOATE
     Indication: Asthma
     Dosage: 2 DOSAGE FORM, QD
  12. VENTOLIN [Concomitant]
     Active Substance: ALBUTEROL SULFATE
     Indication: Asthma
     Dosage: UNK (CONDITIONAL)

REACTIONS (22)
  - Humerus fracture [Recovering/Resolving]
  - Fall [Unknown]
  - Pain [Recovering/Resolving]
  - Breast cancer metastatic [Unknown]
  - Bronchial disorder [Not Recovered/Not Resolved]
  - Pneumonitis [Unknown]
  - Asphyxia [Unknown]
  - Respiratory tract infection [Unknown]
  - General physical health deterioration [Unknown]
  - Agitation [Unknown]
  - Skin burning sensation [Unknown]
  - Feeling abnormal [Recovering/Resolving]
  - Oxygen saturation decreased [Recovering/Resolving]
  - Choking sensation [Recovering/Resolving]
  - Traumatic lung injury [Recovering/Resolving]
  - Contusion [Recovering/Resolving]
  - Rib fracture [Recovering/Resolving]
  - Nasopharyngitis [Recovering/Resolving]
  - Snoring [Unknown]
  - Memory impairment [Unknown]
  - Pain in extremity [Not Recovered/Not Resolved]
  - Drug ineffective [Unknown]

NARRATIVE: CASE EVENT DATE: 20200704
